FAERS Safety Report 6219653-0 (Version None)
Quarter: 2009Q2

REPORT INFORMATION
  Report Type: 
  Country: None (occurrence: None)
  Receive Date: 20090609
  Receipt Date: 20090602
  Transmission Date: 20091009
  Serious: Yes (Hospitalization)
  Sender: FDA-Public Use
  Company Number: FR-BAYER-200922404GPV

PATIENT
  Age: 17 Year
  Sex: Female

DRUGS (1)
  1. CIFLOX [Suspect]
     Indication: DRUG USE FOR UNKNOWN INDICATION
     Route: 065
     Dates: end: 20090423

REACTIONS (4)
  - CELLULITIS [None]
  - ERYTHEMA [None]
  - PHOTOSENSITIVITY REACTION [None]
  - SUPERINFECTION [None]
